FAERS Safety Report 9684795 (Version 1)
Quarter: 2013Q4

REPORT INFORMATION
  Report Type: Spontaneous
  Country: US (occurrence: US)
  Receive Date: 20131112
  Receipt Date: 20131112
  Transmission Date: 20140711
  Serious: Yes (Other)
  Sender: FDA-Public Use
  Company Number: US-BAXTER-2013BAX044016

PATIENT
  Age: 55 Year
  Sex: Male
  Weight: 60 kg

DRUGS (2)
  1. SODIUM CHLORIDE INJECTION [Suspect]
     Indication: HYPONATRAEMIA
  2. SODIUM CHLORIDE INJECTION [Suspect]

REACTIONS (2)
  - Blood sodium abnormal [Unknown]
  - Demyelination [Unknown]
